FAERS Safety Report 18760927 (Version 1)
Quarter: 2021Q1

REPORT INFORMATION
  Report Type: Spontaneous
  Country: US (occurrence: US)
  Receive Date: 20210120
  Receipt Date: 20210120
  Transmission Date: 20210419
  Serious: No
  Sender: FDA-Public Use
  Company Number: US-JNJFOC-20210107462

PATIENT
  Sex: Female

DRUGS (11)
  1. FAMOTIDINE. [Suspect]
     Active Substance: FAMOTIDINE
     Indication: RASH ERYTHEMATOUS
     Route: 065
     Dates: start: 20201217
  2. FAMOTIDINE. [Suspect]
     Active Substance: FAMOTIDINE
     Indication: RESPIRATORY DISTRESS
  3. DECADRON [Concomitant]
     Active Substance: DEXAMETHASONE
     Indication: PREMEDICATION
     Dosage: 4 OF DECADRON
     Route: 065
     Dates: start: 20201217
  4. EPINEPHRINE. [Concomitant]
     Active Substance: EPINEPHRINE
     Indication: RASH ERYTHEMATOUS
     Route: 065
     Dates: start: 20201217
  5. EPINEPHRINE. [Concomitant]
     Active Substance: EPINEPHRINE
     Indication: RESPIRATORY DISTRESS
  6. LEVOTHYROXINE. [Concomitant]
     Active Substance: LEVOTHYROXINE
     Indication: PRODUCT USED FOR UNKNOWN INDICATION
     Route: 065
  7. COVID?19 VACCINE NOS. [Concomitant]
     Active Substance: COVID-19 VACCINE NOS
     Indication: IMMUNISATION
     Dosage: LEFT DELTOID IM
     Route: 030
     Dates: start: 20201217
  8. SINGULAIR [Concomitant]
     Active Substance: MONTELUKAST SODIUM
     Indication: PRODUCT USED FOR UNKNOWN INDICATION
     Route: 065
  9. BENADRYL [Suspect]
     Active Substance: DIPHENHYDRAMINE HYDROCHLORIDE
     Indication: PREMEDICATION
     Dosage: 25 OF BENADRYL
     Route: 065
     Dates: start: 20201217
  10. BENADRYL [Suspect]
     Active Substance: DIPHENHYDRAMINE HYDROCHLORIDE
     Indication: RASH ERYTHEMATOUS
  11. BENADRYL [Suspect]
     Active Substance: DIPHENHYDRAMINE HYDROCHLORIDE
     Indication: RESPIRATORY DISTRESS

REACTIONS (2)
  - Off label use [Unknown]
  - Product use in unapproved indication [Unknown]

NARRATIVE: CASE EVENT DATE: 20201217
